FAERS Safety Report 4977876-2 (Version None)
Quarter: 2006Q2

REPORT INFORMATION
  Report Type: 
  Country: None (occurrence: None)
  Receive Date: 20060417
  Receipt Date: 20051018
  Transmission Date: 20061013
  Serious: Yes (Other)
  Sender: FDA-Public Use
  Company Number: 2006047212

PATIENT
  Age: 57 Year
  Sex: Female
  Weight: 71.2147 kg

DRUGS (3)
  1. BEXTRA [Suspect]
     Indication: ARTHRITIS
     Dosage: 10 MG 1 IN 1 D
     Dates: start: 20021115, end: 20021122
  2. LOZOL [Concomitant]
  3. CHROMAGEN  (ASCORBIC ACID, CYANOCOBALAMIN, FERROUS FUMARATE, STOMACH D [Concomitant]

REACTIONS (5)
  - CHILLS [None]
  - PERIPHERAL VASCULAR DISORDER [None]
  - RASH GENERALISED [None]
  - RASH MACULO-PAPULAR [None]
  - RASH PRURITIC [None]
